FAERS Safety Report 6741336-9 (Version None)
Quarter: 2010Q2

REPORT INFORMATION
  Report Type: 
  Country: None (occurrence: None)
  Receive Date: 20100526
  Receipt Date: 20100514
  Transmission Date: 20101027
  Serious: Yes (Other)
  Sender: FDA-Public Use
  Company Number: BR-PFIZER INC-2010060843

PATIENT
  Age: 29 Year
  Sex: Female
  Weight: 45 kg

DRUGS (5)
  1. DOSTINEX [Suspect]
     Indication: ADENOMA BENIGN
     Dosage: 1 TABLET PER WEEK
     Route: 048
     Dates: start: 20020101
  2. DOSTINEX [Suspect]
     Dosage: 1 TABLET AND A HALF PER WEEK
     Route: 048
  3. DOSTINEX [Suspect]
     Dosage: 2 TABLET PER WEEK
     Route: 048
     Dates: start: 20091201
  4. YASMIN [Suspect]
     Indication: ACNE
     Dosage: UNK
     Dates: start: 20060101, end: 20080401
  5. YASMIN [Suspect]
     Indication: SEBORRHOEA

REACTIONS (8)
  - ALOPECIA [None]
  - AMENORRHOEA [None]
  - BLOOD PROLACTIN ABNORMAL [None]
  - BONE DENSITY DECREASED [None]
  - CHEST PAIN [None]
  - GINGIVAL PAIN [None]
  - NO THERAPEUTIC RESPONSE [None]
  - TOOTHACHE [None]
